FAERS Safety Report 15007534 (Version 6)
Quarter: 2021Q1

REPORT INFORMATION
  Report Type: Other
  Country: CA (occurrence: CA)
  Receive Date: 20180613
  Receipt Date: 20210114
  Transmission Date: 20210419
  Serious: Yes (Other)
  Sender: FDA-Public Use
  Company Number: CA-APOTEX-2018AP015317

PATIENT
  Sex: Female

DRUGS (6)
  1. TELMISARTAN. [Suspect]
     Active Substance: TELMISARTAN
     Indication: BLOOD PRESSURE MEASUREMENT
     Dosage: UNK
     Route: 065
  2. ZYPREXA [Suspect]
     Active Substance: OLANZAPINE
     Indication: PRODUCT USED FOR UNKNOWN INDICATION
     Dosage: UNK
     Route: 065
  3. MICARDIS [Suspect]
     Active Substance: TELMISARTAN
     Indication: BLOOD PRESSURE MEASUREMENT
     Dosage: 40 MG, UNK
     Route: 065
  4. VITAMINS                           /00067501/ [Concomitant]
     Active Substance: VITAMINS
     Indication: PRODUCT USED FOR UNKNOWN INDICATION
     Dosage: UNK
     Route: 065
  5. VITAMINS NOS [Concomitant]
     Active Substance: VITAMINS
     Indication: PRODUCT USED FOR UNKNOWN INDICATION
     Dosage: UNK
     Route: 065
  6. OLANZAPINE. [Suspect]
     Active Substance: OLANZAPINE
     Indication: PRODUCT USED FOR UNKNOWN INDICATION
     Dosage: 2.5 MG, QD
     Route: 065

REACTIONS (10)
  - Weight increased [Recovered/Resolved]
  - Product storage error [Recovered/Resolved]
  - Drug ineffective [Recovered/Resolved]
  - Intentional product use issue [Recovered/Resolved]
  - Obstructive defaecation [Recovered/Resolved]
  - Gastrooesophageal reflux disease [Recovered/Resolved]
  - Hypertension [Recovered/Resolved]
  - Blood cholesterol abnormal [Recovered/Resolved]
  - Eating disorder [Recovered/Resolved]
  - Wrong technique in product usage process [Recovered/Resolved]
